FAERS Safety Report 17368220 (Version 1)
Quarter: 2020Q1

REPORT INFORMATION
  Report Type: Spontaneous
  Country: DK (occurrence: DK)
  Receive Date: 20200204
  Receipt Date: 20200204
  Transmission Date: 20200409
  Serious: Yes (Disabling)
  Sender: FDA-Public Use
  Company Number: DK-BAYER-2019-042632

PATIENT
  Age: 43 Year
  Sex: Female
  Weight: 71 kg

DRUGS (1)
  1. MIRENA [Suspect]
     Active Substance: LEVONORGESTREL
     Indication: CONTRACEPTION
     Dosage: 1 DF, UNK
     Route: 015
     Dates: start: 20170515, end: 20181126

REACTIONS (5)
  - Sleep disorder [Recovering/Resolving]
  - Pain in extremity [Recovering/Resolving]
  - Back pain [Recovering/Resolving]
  - Gait disturbance [Recovering/Resolving]
  - Pelvic pain [Recovering/Resolving]

NARRATIVE: CASE EVENT DATE: 20170601
